FAERS Safety Report 12729388 (Version 1)
Quarter: 2016Q3

REPORT INFORMATION
  Report Type: Spontaneous
  Country: US (occurrence: US)
  Receive Date: 20160909
  Receipt Date: 20160909
  Transmission Date: 20161109
  Serious: Yes (Other)
  Sender: FDA-Public Use
  Company Number: US-TEVA-691345USA

PATIENT
  Age: 41 Year
  Sex: Female

DRUGS (3)
  1. AMANTADINE [Concomitant]
     Active Substance: AMANTADINE
  2. COPAXONE [Suspect]
     Active Substance: GLATIRAMER ACETATE
     Indication: MULTIPLE SCLEROSIS
     Dosage: 17.1429 MILLIGRAM DAILY;
     Route: 058
     Dates: start: 20160310
  3. VITAMIN D [Concomitant]
     Active Substance: CHOLECALCIFEROL

REACTIONS (2)
  - Multiple sclerosis relapse [Unknown]
  - Injection site reaction [Unknown]

NARRATIVE: CASE EVENT DATE: 201608
